FAERS Safety Report 20483606 (Version 2)
Quarter: 2022Q2

REPORT INFORMATION
  Report Type: Spontaneous
  Country: DE (occurrence: DE)
  Receive Date: 20220217
  Receipt Date: 20220627
  Transmission Date: 20220721
  Serious: Yes (Life-Threatening, Other)
  Sender: FDA-Public Use
  Company Number: DE-NOVPHSZ-PHHY2019DE163114

PATIENT
  Sex: Male
  Weight: 95 kg

DRUGS (45)
  1. JARDIANCE [Suspect]
     Active Substance: EMPAGLIFLOZIN
     Indication: Product used for unknown indication
     Dosage: 0.5 DF, QD
  2. JARDIANCE [Suspect]
     Active Substance: EMPAGLIFLOZIN
     Dosage: 0.5 DOSAGE FORM
     Route: 065
  3. TELMISARTAN [Suspect]
     Active Substance: TELMISARTAN
     Indication: Product used for unknown indication
     Dosage: 1 DF, QD
  4. TELMISARTAN [Suspect]
     Active Substance: TELMISARTAN
     Dosage: 1 DOSAGE FORM
     Route: 065
  5. VALSARTAN [Suspect]
     Active Substance: VALSARTAN
     Indication: Hypertension
     Dosage: 160 MG, QD
     Dates: start: 201606
  6. VALSARTAN [Suspect]
     Active Substance: VALSARTAN
     Indication: Hypertension
     Dosage: 160 MG OR 80 MG DAILY DOSE, QD (MORNING) (AMBIGUOUS)
     Route: 065
     Dates: start: 20170130, end: 20180721
  7. ESOMEPRAZOLE MAGNESIUM [Suspect]
     Active Substance: ESOMEPRAZOLE MAGNESIUM
     Indication: Product used for unknown indication
     Dosage: 1 DF, QD
  8. ESOMEPRAZOLE MAGNESIUM [Suspect]
     Active Substance: ESOMEPRAZOLE MAGNESIUM
     Dosage: 1 DOSAGE FORM
     Route: 065
  9. MCP [Concomitant]
     Active Substance: METOCLOPRAMIDE HYDROCHLORIDE
     Indication: Product used for unknown indication
     Dosage: 1 DOSAGE FORM, QD (1 A PHARMA ), DAILY (MORNING)
  10. PROTAPHANE [Concomitant]
     Active Substance: INSULIN HUMAN
     Indication: Product used for unknown indication
  11. PROTAPHANE [Concomitant]
     Active Substance: INSULIN HUMAN
     Indication: Product used for unknown indication
  12. METFORMIN HYDROCHLORIDE [Concomitant]
     Active Substance: METFORMIN HYDROCHLORIDE
     Indication: Product used for unknown indication
  13. METFORMIN HYDROCHLORIDE [Concomitant]
     Active Substance: METFORMIN HYDROCHLORIDE
     Dosage: 1 DOSAGE FORM
     Route: 065
  14. ETORICOXIB [Concomitant]
     Active Substance: ETORICOXIB
     Indication: Product used for unknown indication
     Dosage: 1 DOSAGE FORM (1X 90 MG) IN THE EVENING
  15. ETORICOXIB [Concomitant]
     Active Substance: ETORICOXIB
     Dosage: 1 DOSAGE FORM
     Route: 065
  16. HYDROCHLOROTHIAZIDE\VALSARTAN [Concomitant]
     Active Substance: HYDROCHLOROTHIAZIDE\VALSARTAN
     Indication: Hypertension
     Dosage: 80 MG/ 12.5MG
     Route: 065
     Dates: start: 2018
  17. AMLODIPINE BESYLATE [Concomitant]
     Active Substance: AMLODIPINE BESYLATE
     Indication: Product used for unknown indication
     Dosage: 0.5 DOSAGE FORM, QD (IN THE MORNING)
  18. AMLODIPINE BESYLATE [Concomitant]
     Active Substance: AMLODIPINE BESYLATE
     Dosage: 0.5 DOSAGE FORM, QD (IN THE MORNING)
     Route: 065
  19. AMLODIPINE BESYLATE [Concomitant]
     Active Substance: AMLODIPINE BESYLATE
     Dosage: 1DF, QD
     Route: 065
  20. VICTOZA [Concomitant]
     Active Substance: LIRAGLUTIDE
     Indication: Product used for unknown indication
     Dosage: 1.2 ML, QD (1.2-0-0), READY PEN
  21. VICTOZA [Concomitant]
     Active Substance: LIRAGLUTIDE
     Dosage: 1.2 ML, QD (1.2-0-0)
     Route: 065
  22. BEZAFIBRAT AL [Concomitant]
     Indication: Product used for unknown indication
     Dosage: 1 DOSAGE FORM, QD (1X400) (IN THE EVENING)
  23. BEZAFIBRAT AL [Concomitant]
     Dosage: 1 DOSAGE FORM 1X400 IN THE EVENING
     Route: 065
  24. VALSARTAN [Concomitant]
     Active Substance: VALSARTAN
     Indication: Product used for unknown indication
     Dosage: 160 MG, BID (MORNING AND EVENING)
  25. VALSARTAN [Concomitant]
     Active Substance: VALSARTAN
     Dosage: MORNING AND EVENING
     Route: 065
  26. INSULIN NOS [Concomitant]
     Active Substance: INSULIN NOS
     Indication: Type 2 diabetes mellitus
     Dosage: UNK
  27. INSULIN NOS [Concomitant]
     Active Substance: INSULIN NOS
     Dosage: UNK
     Route: 065
  28. TORSEMIDE [Concomitant]
     Active Substance: TORSEMIDE
     Indication: Product used for unknown indication
     Dosage: 1 DOSAGE FORM, QD, DAILY (MORNING)
  29. AXIRON [Concomitant]
     Active Substance: TESTOSTERONE
     Indication: Product used for unknown indication
     Dosage: UNK(1X2)
  30. AXIRON [Concomitant]
     Active Substance: TESTOSTERONE
     Dosage: UNK(1X2)
     Route: 065
  31. SYMBICORT [Concomitant]
     Active Substance: BUDESONIDE\FORMOTEROL FUMARATE DIHYDRATE
     Indication: Product used for unknown indication
     Dosage: 1 DOSAGE FORM, TID
  32. SYMBICORT [Concomitant]
     Active Substance: BUDESONIDE\FORMOTEROL FUMARATE DIHYDRATE
     Indication: Product used for unknown indication
     Dosage: INHALER
  33. HYDROCHLOROTHIAZIDE\VALSARTAN [Concomitant]
     Active Substance: HYDROCHLOROTHIAZIDE\VALSARTAN
     Indication: Hypertension
     Dosage: 160 MG
     Route: 065
     Dates: start: 20171103
  34. ALBUTEROL SULFATE [Concomitant]
     Active Substance: ALBUTEROL SULFATE
     Indication: Product used for unknown indication
     Dosage: 100 UG/400, PRN, AS NEEDED
  35. ALBUTEROL SULFATE [Concomitant]
     Active Substance: ALBUTEROL SULFATE
     Dosage: PRN
     Route: 065
  36. IBUPROFEN [Concomitant]
     Active Substance: IBUPROFEN
     Indication: Product used for unknown indication
     Dosage: 1 DOSAGE FORM, PRN, AS NEEDED
  37. LYRICA [Concomitant]
     Active Substance: PREGABALIN
     Indication: Product used for unknown indication
     Dosage: 1 DOSAGE FORM, BID ((MORNING AND EVENING))
  38. LYRICA [Concomitant]
     Active Substance: PREGABALIN
     Dosage: 1 DOSAGE FORM
     Route: 065
  39. METAMIZOLE SODIUM [Concomitant]
     Active Substance: METAMIZOLE SODIUM
     Indication: Product used for unknown indication
     Dosage: 1 DOSAGE FORM, BID, DAILY (MORNING AND EVENING)
  40. METAMIZOLE SODIUM [Concomitant]
     Active Substance: METAMIZOLE SODIUM
     Dosage: 1 DF, BID
     Route: 065
  41. MCP [Concomitant]
     Active Substance: METOCLOPRAMIDE HYDROCHLORIDE
     Indication: Product used for unknown indication
     Dosage: 1 DOSAGE FORM, QD (1 A PHARMA )
     Route: 065
  42. TORSEMIDE [Concomitant]
     Active Substance: TORSEMIDE
     Indication: Product used for unknown indication
     Dosage: 1 DOSAGE FORM
     Route: 065
  43. IBUPROFEN [Concomitant]
     Active Substance: IBUPROFEN
     Indication: Product used for unknown indication
     Dosage: 1 DOSAGE FORM,
     Route: 065
  44. IBUPROFEN [Concomitant]
     Active Substance: IBUPROFEN
     Dosage: 1 DOSAGE FORM
     Route: 065
  45. VALSARTAN [Concomitant]
     Active Substance: VALSARTAN
     Indication: Product used for unknown indication
     Dosage: 160 MG, BID (MORNING AND EVENING)
     Route: 065

REACTIONS (89)
  - Feeling abnormal [Unknown]
  - Mitral valve incompetence [Unknown]
  - Electrocardiogram ST segment depression [Unknown]
  - Blood pressure increased [Unknown]
  - Rheumatoid arthritis [Unknown]
  - Polyarthritis [Unknown]
  - Osteonecrosis [Unknown]
  - Osteonecrosis [Unknown]
  - Cardiac failure [Unknown]
  - Polyneuropathy [Unknown]
  - Cardiac failure [Unknown]
  - Polyneuropathy [Unknown]
  - Fatigue [Recovered/Resolved]
  - Diarrhoea [Recovered/Resolved]
  - Depression [Recovered/Resolved]
  - Cardiovascular disorder [Recovered/Resolved]
  - Arthralgia [Recovered/Resolved]
  - Headache [Recovered/Resolved]
  - Depression [Recovered/Resolved]
  - Diarrhoea [Recovered/Resolved]
  - Headache [Recovered/Resolved]
  - Cardiovascular disorder [Recovered/Resolved]
  - Fatigue [Recovered/Resolved]
  - Arthralgia [Recovered/Resolved]
  - Chest pain [Unknown]
  - Chest pain [Unknown]
  - General physical health deterioration [Unknown]
  - C-reactive protein increased [Unknown]
  - C-reactive protein increased [Unknown]
  - General physical health deterioration [Unknown]
  - Spermatocele [Unknown]
  - Spermatocele [Unknown]
  - Left ventricular hypertrophy [Unknown]
  - Supraventricular extrasystoles [Unknown]
  - Bundle branch block right [Unknown]
  - Atrioventricular block first degree [Unknown]
  - Aortic valve sclerosis [Unknown]
  - Bundle branch block right [Unknown]
  - Aortic valve sclerosis [Unknown]
  - Atrioventricular block first degree [Unknown]
  - Left ventricular hypertrophy [Unknown]
  - Supraventricular extrasystoles [Unknown]
  - Synovial cyst [Unknown]
  - Osteoarthritis [Unknown]
  - Ill-defined disorder [Unknown]
  - Meniscus injury [Unknown]
  - Joint effusion [Unknown]
  - Osteoarthritis [Unknown]
  - Ill-defined disorder [Unknown]
  - Meniscus injury [Unknown]
  - Joint effusion [Unknown]
  - Synovial cyst [Unknown]
  - Somnolence [Unknown]
  - Body fat disorder [Unknown]
  - Emotional distress [Unknown]
  - Synovial disorder [Unknown]
  - Mental disorder [Unknown]
  - Fear [Unknown]
  - Gastrointestinal disorder [Unknown]
  - Anxiety disorder [Unknown]
  - Incontinence [Unknown]
  - Nocturia [Unknown]
  - Benign prostatic hyperplasia [Unknown]
  - Cardiac discomfort [Unknown]
  - Pain in extremity [Unknown]
  - Hyperventilation [Unknown]
  - Palpitations [Unknown]
  - Dry mouth [Unknown]
  - Asthenia [Unknown]
  - Lymphoedema [Unknown]
  - Product contamination [Unknown]
  - Cardiac discomfort [Unknown]
  - Fear [Unknown]
  - Asthenia [Unknown]
  - Somnolence [Unknown]
  - Incontinence [Unknown]
  - Nocturia [Unknown]
  - Palpitations [Unknown]
  - Dry mouth [Unknown]
  - Emotional distress [Unknown]
  - Anxiety disorder [Unknown]
  - Product contamination [Unknown]
  - Pain in extremity [Unknown]
  - Hyperventilation [Unknown]
  - Body fat disorder [Unknown]
  - Benign prostatic hyperplasia [Unknown]
  - Gastrointestinal disorder [Unknown]
  - Lymphoedema [Unknown]
  - Synovial disorder [Unknown]

NARRATIVE: CASE EVENT DATE: 20170130
